FAERS Safety Report 9280235 (Version 3)
Quarter: 2014Q3

REPORT INFORMATION
  Report Type: Report from Study
  Country: BD (occurrence: BD)
  Receive Date: 20130509
  Receipt Date: 20140915
  Transmission Date: 20150326
  Serious: Yes (Death)
  Sender: FDA-Public Use
  Company Number: PHHY2013BD045083

PATIENT
  Age: 65 Year
  Sex: Female

DRUGS (1)
  1. EXELON PATCH [Suspect]
     Active Substance: RIVASTIGMINE
     Indication: DEMENTIA
     Dosage: 4.6 MG, DAILY (5 CM)
     Route: 062
     Dates: start: 201207

REACTIONS (4)
  - Drug ineffective [Unknown]
  - Death [Fatal]
  - Dementia [Fatal]
  - Hypertension [Fatal]
